FAERS Safety Report 5828295-8 (Version None)
Quarter: 2008Q3

REPORT INFORMATION
  Report Type: 
  Country: None (occurrence: None)
  Receive Date: 20080730
  Receipt Date: 20080730
  Transmission Date: 20090109
  Serious: No
  Sender: FDA-Public Use
  Company Number: None

PATIENT
  Age: 67 Year
  Sex: Male
  Weight: 112 kg

DRUGS (1)
  1. NEOSTIGMINE 1MG/ML (5ML SYRINGE-PREDRAWN) [Suspect]
     Indication: NEUROMUSCULAR BLOCKADE REVERSAL
     Dosage: 7 MG ONCE IV
     Route: 042
     Dates: start: 20080717

REACTIONS (1)
  - ASTHENIA [None]
